FAERS Safety Report 17556553 (Version 4)
Quarter: 2022Q2

REPORT INFORMATION
  Report Type: Report from Study
  Country: AU (occurrence: AU)
  Receive Date: 20200318
  Receipt Date: 20220615
  Transmission Date: 20220721
  Serious: Yes (Hospitalization, Other)
  Sender: FDA-Public Use
  Company Number: None

PATIENT
  Age: 12 Month
  Sex: Female
  Weight: 12.1 kg

DRUGS (5)
  1. ZOLGENSMA [Suspect]
     Active Substance: ONASEMNOGENE ABEPARVOVEC-XIOI
     Indication: Spinal muscular atrophy
     Dosage: 66 ML, ONCE/SINGLE (SINGLE DOSE OF 1.1X10E14 VG/KG OVER 60 MIN, ON DAY ONE OF THE TREATMENT PERIOD)
     Route: 042
     Dates: start: 20200225
  2. NUSINERSEN [Suspect]
     Active Substance: NUSINERSEN
     Indication: Spinal muscular atrophy
     Dosage: UNK
     Route: 065
  3. PREDNISOLONE [Concomitant]
     Active Substance: PREDNISOLONE
     Indication: Prophylaxis
     Dosage: 12 MG, QD
     Route: 065
     Dates: start: 20200224, end: 20200303
  4. PREDNISOLONE [Concomitant]
     Active Substance: PREDNISOLONE
     Dosage: 5 MG/ML, QD
     Route: 065
     Dates: start: 20200224
  5. PREDNISOLONE [Concomitant]
     Active Substance: PREDNISOLONE
     Dosage: 1 MG/KG, QD
     Route: 048

REACTIONS (16)
  - Thrombocytopenia [Recovered/Resolved]
  - Renal impairment [Recovered/Resolved with Sequelae]
  - Atypical haemolytic uraemic syndrome [Recovered/Resolved with Sequelae]
  - Hypertension [Recovered/Resolved]
  - Thrombotic microangiopathy [Recovered/Resolved]
  - Dehydration [Recovered/Resolved]
  - Microangiopathic haemolytic anaemia [Recovered/Resolved]
  - Renal injury [Recovered/Resolved with Sequelae]
  - Petechiae [Recovered/Resolved]
  - Gastrooesophageal reflux disease [Recovered/Resolved]
  - Vomiting [Recovered/Resolved]
  - Urine output decreased [Unknown]
  - Blood creatine phosphokinase increased [Recovered/Resolved]
  - Hypertransaminasaemia [Recovered/Resolved]
  - Oedema [Unknown]
  - Irritability [Unknown]

NARRATIVE: CASE EVENT DATE: 20200303
